FAERS Safety Report 11376767 (Version 1)
Quarter: 2015Q3

REPORT INFORMATION
  Report Type: Spontaneous
  Country: US (occurrence: US)
  Receive Date: 20150813
  Receipt Date: 20150813
  Transmission Date: 20151125
  Serious: No
  Sender: FDA-Public Use
  Company Number: GXBR2015US001799

PATIENT
  Sex: Male

DRUGS (1)
  1. SOLARAZE [Suspect]
     Active Substance: DICLOFENAC SODIUM
     Indication: PELVIC INFLAMMATORY DISEASE
     Dosage: UNK DF, UNK
     Route: 061
     Dates: start: 2013

REACTIONS (2)
  - Off label use [Unknown]
  - Expired product administered [Unknown]
